FAERS Safety Report 6587648-3 (Version None)
Quarter: 2010Q1

REPORT INFORMATION
  Report Type: 
  Country: None (occurrence: None)
  Receive Date: 20100218
  Receipt Date: 20100209
  Transmission Date: 20100710
  Serious: Yes (Hospitalization)
  Sender: FDA-Public Use
  Company Number: ES-ELI_LILLY_AND_COMPANY-ES201002002291

PATIENT
  Age: 80 Year
  Sex: Male

DRUGS (5)
  1. FORTEO [Suspect]
     Indication: OSTEOPOROSIS
     Dosage: 20 UG, DAILY (1/D)
     Route: 058
     Dates: start: 20091101
  2. COLCHICINA [Concomitant]
     Dosage: UNK, UNKNOWN
  3. SINTROM [Concomitant]
  4. PANTECTA [Concomitant]
  5. MASTICAL [Concomitant]
     Dosage: UNK, UNKNOWN

REACTIONS (2)
  - CEREBROVASCULAR ACCIDENT [None]
  - PLEURAL EFFUSION [None]
